FAERS Safety Report 7739912-X (Version None)
Quarter: 2011Q3

REPORT INFORMATION
  Report Type: 
  Country: None (occurrence: None)
  Receive Date: 20110909
  Receipt Date: 20110906
  Transmission Date: 20111222
  Serious: Yes (Death, Hospitalization)
  Sender: FDA-Public Use
  Company Number: PHHY2011NL73342

PATIENT
  Sex: Male

DRUGS (3)
  1. ZOMETA [Suspect]
     Indication: PROSTATE CANCER
     Dosage: 4 MG/5 ML 1X PER 28 DAYS
     Dates: start: 20110201
  2. ZOMETA [Suspect]
     Dosage: 4 MG/5 ML 1X PER 28 DAYS
     Dates: start: 20110719
  3. ZOMETA [Suspect]
     Dosage: 4 MG/5 ML 1X PER 28 DAYS
     Dates: start: 20110815

REACTIONS (10)
  - ASTHENIA [None]
  - GAIT DISTURBANCE [None]
  - RESPIRATORY TRACT INFECTION [None]
  - FATIGUE [None]
  - COUGH [None]
  - BONE PAIN [None]
  - DEATH [None]
  - PYREXIA [None]
  - HYPOPHAGIA [None]
  - BEDRIDDEN [None]
